FAERS Safety Report 24550004 (Version 1)
Quarter: 2024Q4

REPORT INFORMATION
  Report Type: Report from Study
  Country: HN (occurrence: HN)
  Receive Date: 20241025
  Receipt Date: 20241025
  Transmission Date: 20250115
  Serious: Yes (Hospitalization)
  Sender: NOVARTIS
  Company Number: HN-002147023-NVSC2024HN207822

PATIENT
  Age: 77 Year
  Sex: Female

DRUGS (2)
  1. EXFORGE HCT [Suspect]
     Active Substance: AMLODIPINE BESYLATE\HYDROCHLOROTHIAZIDE\VALSARTAN
     Indication: Hypertension
     Dosage: 0.5 DOSAGE FORM, QD (5/160/ 25 MG
     Route: 048
  2. EXFORGE HCT [Suspect]
     Active Substance: AMLODIPINE BESYLATE\HYDROCHLOROTHIAZIDE\VALSARTAN
     Dosage: 0.5 DOSAGE FORM, QD (5/160/ 12.5 MG
     Route: 048
     Dates: start: 202409

REACTIONS (3)
  - Cerebrovascular accident [Recovering/Resolving]
  - Incorrect dose administered [Unknown]
  - Aphasia [Unknown]

NARRATIVE: CASE EVENT DATE: 20240801
